FAERS Safety Report 8416007-3 (Version None)
Quarter: 2012Q2

REPORT INFORMATION
  Report Type: 
  Country: None (occurrence: None)
  Receive Date: 20120606
  Receipt Date: 20110831
  Transmission Date: 20120825
  Serious: Yes (Other)
  Sender: FDA-Public Use
  Company Number: US-PFIZER INC-2011191839

PATIENT
  Sex: Female

DRUGS (5)
  1. MOTRIN IB [Suspect]
     Indication: MIGRAINE
     Dosage: UNK
     Dates: end: 20000101
  2. BC POWDER [Suspect]
     Indication: MIGRAINE
     Dosage: UNK
     Dates: end: 20000101
  3. ACETAMINOPHEN [Suspect]
     Indication: MIGRAINE
     Dosage: UNK
     Dates: end: 20000101
  4. ACETYLSALICYLIC ACID SRT [Suspect]
     Indication: MIGRAINE
     Dosage: UNK
     Dates: end: 20000101
  5. ACETAMINOPHEN, ASPIRIN AND CAFFEINE [Suspect]
     Indication: MIGRAINE
     Dosage: UNK
     Dates: end: 20000101

REACTIONS (2)
  - GASTRIC ULCER [None]
  - OESOPHAGITIS [None]
